FAERS Safety Report 16469305 (Version 1)
Quarter: 2019Q3

REPORT INFORMATION
  Report Type: Spontaneous
  Country: PR (occurrence: PR)
  Receive Date: 20190621
  Receipt Date: 20190621
  Transmission Date: 20191004
  Serious: No
  Sender: FDA-Public Use
  Company Number: None

PATIENT
  Age: 19 Year
  Sex: Male
  Weight: 26.1 kg

DRUGS (1)
  1. TYGACIL [Suspect]
     Active Substance: TIGECYCLINE
     Indication: URINARY TRACT INFECTION
     Route: 041
     Dates: start: 20190606, end: 20190606

REACTIONS (2)
  - Respiratory distress [None]
  - Nausea [None]

NARRATIVE: CASE EVENT DATE: 20190606
